FAERS Safety Report 24071306 (Version 1)
Quarter: 2024Q3

REPORT INFORMATION
  Report Type: Spontaneous
  Country: US (occurrence: US)
  Receive Date: 20240710
  Receipt Date: 20240710
  Transmission Date: 20241017
  Serious: No
  Sender: ROCHE
  Company Number: US-ROCHE-3554288

PATIENT

DRUGS (1)
  1. ALECENSA [Suspect]
     Active Substance: ALECTINIB HYDROCHLORIDE
     Indication: Non-small cell lung cancer
     Dosage: (4)150MG TABLETS- IN MORNING AND IN AFTERNOON-12 HRS DIFFERENT
     Route: 065

REACTIONS (3)
  - Overdose [Unknown]
  - Memory impairment [Unknown]
  - Cough [Recovered/Resolved]
